FAERS Safety Report 5105229-5 (Version None)
Quarter: 2006Q3

REPORT INFORMATION
  Report Type: 
  Country: None (occurrence: None)
  Receive Date: 20060911
  Receipt Date: 20060828
  Transmission Date: 20061208
  Serious: Yes (Hospitalization)
  Sender: FDA-Public Use
  Company Number: FABR-11424

PATIENT
  Age: 49 Year
  Sex: Male
  Weight: 79.5 kg

DRUGS (3)
  1. FABRAZYME [Suspect]
     Indication: FABRY'S DISEASE
     Dosage: 70 MG Q2WKS IV
     Route: 042
     Dates: start: 20040504, end: 20060504
  2. ASPIRIN [Concomitant]
  3. ENALAPRIL [Concomitant]

REACTIONS (10)
  - ANXIETY [None]
  - BUNDLE BRANCH BLOCK [None]
  - CARDIAC DISORDER [None]
  - CHEST PAIN [None]
  - CORONARY ARTERY STENOSIS [None]
  - DEVICE RELATED INFECTION [None]
  - MALAISE [None]
  - POST PROCEDURAL COMPLICATION [None]
  - SKIN ULCER [None]
  - VENTRICULAR HYPERTROPHY [None]
